FAERS Safety Report 8397946 (Version 2)
Quarter: 2014Q1

REPORT INFORMATION
  Report Type: Spontaneous
  Country: DE (occurrence: DE)
  Receive Date: 20120209
  Receipt Date: 20140124
  Transmission Date: 20141002
  Serious: Yes (Life-Threatening, Hospitalization)
  Sender: FDA-Public Use
  Company Number: DE-ELI_LILLY_AND_COMPANY-DE201202000955

PATIENT
  Age: 50 Year
  Sex: Male
  Weight: 55 kg

DRUGS (6)
  1. EFIENT [Suspect]
     Indication: THROMBOSIS IN DEVICE
     Dosage: 60 MG, SINGLE LOADING DOSE
     Dates: start: 20120131, end: 20120131
  2. EFIENT [Suspect]
     Indication: ACUTE CORONARY SYNDROME
     Dosage: 5 MG, UNK
     Dates: start: 20120131, end: 20120131
  3. EFIENT [Suspect]
     Dosage: 10 MG, UNK
  4. ASS [Concomitant]
  5. BETA BLOCKING AGENTS [Concomitant]
  6. ACE INHIBITORS [Concomitant]

REACTIONS (5)
  - Thrombosis in device [Recovered/Resolved]
  - Platelet aggregation abnormal [Recovered/Resolved]
  - Off label use [Unknown]
  - Prescribed overdose [Unknown]
  - Drug ineffective [Unknown]
